FAERS Safety Report 23365413 (Version 1)
Quarter: 2024Q1

REPORT INFORMATION
  Report Type: Spontaneous
  Country: US (occurrence: US)
  Receive Date: 20240104
  Receipt Date: 20240104
  Transmission Date: 20240410
  Serious: Yes (Hospitalization)
  Sender: FDA-Public Use
  Company Number: US-MYLANLABS-2024M1000390

PATIENT
  Age: 56 Year
  Sex: Female

DRUGS (3)
  1. METHADONE [Suspect]
     Active Substance: METHADONE HYDROCHLORIDE
     Indication: Pain
     Dosage: 10 MILLIGRAM, BID (10 MG TWICE DAILY)
     Route: 065
  2. PREDNISONE [Suspect]
     Active Substance: PREDNISONE
     Indication: Hypopituitarism
     Dosage: 7.5 MILLIGRAM, QD (7.5 MG DAILY)
     Route: 065
  3. MS CONTIN [Suspect]
     Active Substance: MORPHINE SULFATE
     Indication: Pain
     Dosage: 60 MILLIGRAM, BID (60 MG TWICE DAILY)
     Route: 065

REACTIONS (3)
  - Hypopituitarism [Recovering/Resolving]
  - Hypothyroidism [Recovering/Resolving]
  - Drug ineffective [Unknown]
